FAERS Safety Report 10625188 (Version 2)
Quarter: 2014Q4

REPORT INFORMATION
  Report Type: Spontaneous
  Country: US (occurrence: None)
  Receive Date: 20141202
  Receipt Date: 20141211
  Transmission Date: 20150529
  Serious: Yes (Other)
  Sender: FDA-Public Use
  Company Number: 20140751

PATIENT
  Age: 54 Year
  Sex: Male

DRUGS (4)
  1. EPINEPHRINE INJECTION, USP (1071-25) 1 MG/ML [Suspect]
     Active Substance: EPINEPHRINE
     Indication: NERVE BLOCK
     Dosage: 1:2000 INJECTION NOS
  2. LISINOPRIL. [Concomitant]
     Active Substance: LISINOPRIL
  3. INSULIN [Concomitant]
     Active Substance: INSULIN NOS
  4. BUPIVACAINE. 7 ML OF 0.5% BUPIVACAINE INJECTION [Concomitant]

REACTIONS (10)
  - Productive cough [None]
  - Blood pressure increased [None]
  - Haemoptysis [None]
  - Supraventricular tachycardia [None]
  - Overdose [None]
  - Cardiomyopathy [None]
  - Respiratory distress [None]
  - Metabolic acidosis [None]
  - Left ventricular dysfunction [None]
  - Mitral valve incompetence [None]
